FAERS Safety Report 20394931 (Version 1)
Quarter: 2022Q1

REPORT INFORMATION
  Report Type: Report from Study
  Country: KR (occurrence: KR)
  Receive Date: 20220130
  Receipt Date: 20220130
  Transmission Date: 20220424
  Serious: Yes (Hospitalization, Other)
  Sender: FDA-Public Use
  Company Number: KR-JAZZ-2020-KR-012621

PATIENT
  Age: 47 Year
  Sex: Male

DRUGS (1)
  1. DEFITELIO [Suspect]
     Active Substance: DEFIBROTIDE SODIUM
     Indication: Venoocclusive disease
     Dosage: 6.25 MILLIGRAM/KILOGRAM, QID
     Route: 042
     Dates: start: 20200521, end: 20200615

REACTIONS (3)
  - Haematochezia [Recovered/Resolved]
  - Graft versus host disease in gastrointestinal tract [Recovered/Resolved]
  - Condition aggravated [Recovered/Resolved]

NARRATIVE: CASE EVENT DATE: 20200101
